FAERS Safety Report 6763038-5 (Version None)
Quarter: 2010Q2

REPORT INFORMATION
  Report Type: 
  Country: None (occurrence: None)
  Receive Date: 20100609
  Receipt Date: 20100602
  Transmission Date: 20101027
  Serious: Yes (Other)
  Sender: FDA-Public Use
  Company Number: US-AMGEN-QUU401980

PATIENT
  Sex: Female
  Weight: 110.8 kg

DRUGS (26)
  1. ARANESP [Suspect]
     Indication: DIALYSIS
     Dates: start: 20090505
  2. PREMARIN [Concomitant]
     Dates: start: 20100406
  3. ZYLOPRIM [Concomitant]
     Route: 048
     Dates: start: 20100205
  4. BENADRYL [Concomitant]
     Dates: start: 20091103
  5. DIATX [Concomitant]
     Route: 048
     Dates: start: 20090825
  6. LOPRESSOR [Concomitant]
     Dates: start: 20090804
  7. FOLIC ACID [Concomitant]
     Dates: start: 20090804
  8. PLAVIX [Concomitant]
     Dates: start: 20090804
  9. OXYCODONE [Concomitant]
     Dates: start: 20090804
  10. PREVACID [Concomitant]
     Dates: start: 20090804
  11. MELATONIN [Concomitant]
     Dates: start: 20090804
  12. TIMOLOL MALEATE [Concomitant]
     Dates: start: 20090804
  13. LANTUS [Concomitant]
     Dates: start: 20090804
  14. HUMULIN R [Concomitant]
     Route: 058
     Dates: start: 20090512
  15. COLACE [Concomitant]
     Route: 048
     Dates: start: 20090512
  16. ASPIRIN [Concomitant]
     Route: 048
     Dates: start: 20090512
  17. FUROSEMIDE [Concomitant]
     Route: 048
     Dates: start: 20090512
  18. HYDRALAZINE HCL [Concomitant]
     Route: 048
     Dates: start: 20090512
  19. XALATAN [Concomitant]
     Dates: start: 20090512
  20. IMDUR [Concomitant]
     Route: 048
     Dates: start: 20090512
  21. NORVASC [Concomitant]
     Route: 048
     Dates: start: 20090512
  22. ZOCOR [Concomitant]
     Route: 048
     Dates: start: 20090512
  23. UNSPECIFIED MEDICATION [Concomitant]
     Route: 048
     Dates: start: 20090512
  24. ALTEPLASE [Concomitant]
     Dates: start: 20090406
  25. VENOFER [Concomitant]
     Route: 042
     Dates: start: 20100126, end: 20100207
  26. ZEMPLAR [Concomitant]
     Route: 042
     Dates: start: 20100126

REACTIONS (6)
  - COLONIC POLYP [None]
  - DRUG INEFFECTIVE [None]
  - DUODENITIS [None]
  - GASTRITIS [None]
  - HELICOBACTER INFECTION [None]
  - OCCULT BLOOD POSITIVE [None]
